FAERS Safety Report 8249186-1 (Version None)
Quarter: 2012Q1

REPORT INFORMATION
  Report Type: 
  Country: None (occurrence: None)
  Receive Date: 20120328
  Receipt Date: 20120315
  Transmission Date: 20120608
  Serious: Yes (Disabling, Other)
  Sender: FDA-Public Use
  Company Number: 2010MA004728

PATIENT
  Sex: Female
  Weight: 127.0072 kg

DRUGS (46)
  1. CEFACLOR [Concomitant]
  2. HYDROCHLOROTHIAZIDE [Concomitant]
  3. NAPROXEN [Concomitant]
  4. PHENTERMINE [Concomitant]
  5. PSEUDOEPHEDRINE HCL [Concomitant]
  6. TETRACYCLINE [Concomitant]
  7. CYCLOBENZAPRINE HCL [Concomitant]
  8. CYTOMEL [Concomitant]
  9. DIAZEPAM [Concomitant]
  10. LORATADINE [Concomitant]
  11. NABUMETONE [Concomitant]
  12. CELEBREX [Concomitant]
  13. CIPROFLOXACIN [Concomitant]
  14. METRONIDAZOLE [Concomitant]
  15. NEXIUM [Concomitant]
  16. NIFEREX [Concomitant]
  17. SINEMET [Concomitant]
  18. ARMOUR THYOID [Concomitant]
  19. CELEXA [Concomitant]
  20. CLONIDINE [Concomitant]
  21. ERY-TAB [Concomitant]
  22. HYDROCODONE BITARTRATE AND ACETAMINOPHEN [Concomitant]
  23. LEVOTHYROXINE SODIUM [Concomitant]
  24. PHENAZOPYRIDINE HCL TAB [Concomitant]
  25. TRAMADOL HCL [Concomitant]
  26. VENTOLIN HFA [Concomitant]
  27. CEPHALEXIN [Concomitant]
  28. FLUCONAZOLE [Concomitant]
  29. MELOXICAM [Concomitant]
  30. NASONEX [Concomitant]
  31. CHROMAGEN [Concomitant]
  32. CYMBALTA [Concomitant]
  33. LUNESTA [Concomitant]
  34. MOBIC [Concomitant]
  35. PIROXICAM [Concomitant]
  36. POTASSIUM [Concomitant]
  37. PROTONIX [Concomitant]
  38. METOCLOPRAMIDE HCL [Suspect]
     Indication: GASTROOESOPHAGEAL REFLUX DISEASE
     Dosage: 10 MG;TID;PO
     Route: 048
     Dates: start: 20040202, end: 20100304
  39. DETROL [Concomitant]
  40. LEVAQUIN [Concomitant]
  41. PERCOCET [Concomitant]
  42. VALIUM [Concomitant]
  43. ASTELIN [Concomitant]
  44. BELLAHIST-D [Concomitant]
  45. OXYBUTYNIN [Concomitant]
  46. RANITIDINE [Concomitant]

REACTIONS (12)
  - MUSCULOSKELETAL STIFFNESS [None]
  - MUSCULOSKELETAL PAIN [None]
  - PAIN IN EXTREMITY [None]
  - DYSKINESIA [None]
  - ECONOMIC PROBLEM [None]
  - PROTRUSION TONGUE [None]
  - MUSCLE SPASMS [None]
  - GAIT DISTURBANCE [None]
  - EMOTIONAL DISORDER [None]
  - PAIN IN JAW [None]
  - TARDIVE DYSKINESIA [None]
  - ARTHRALGIA [None]
